FAERS Safety Report 7323955-4 (Version None)
Quarter: 2011Q1

REPORT INFORMATION
  Report Type: 
  Country: None (occurrence: None)
  Receive Date: 20110301
  Receipt Date: 20110221
  Transmission Date: 20110831
  Serious: Yes (Hospitalization)
  Sender: FDA-Public Use
  Company Number: B0701884A

PATIENT
  Sex: Female
  Weight: 96.4 kg

DRUGS (2)
  1. AVANDIA [Suspect]
     Route: 048
  2. AVANDAMET [Suspect]
     Route: 048

REACTIONS (5)
  - HYPERTENSION [None]
  - CARDIAC FAILURE CONGESTIVE [None]
  - ARTERIOSCLEROSIS [None]
  - CONGESTIVE CARDIOMYOPATHY [None]
  - ATRIAL FIBRILLATION [None]
